FAERS Safety Report 11321992 (Version 2)
Quarter: 2016Q3

REPORT INFORMATION
  Report Type: Spontaneous
  Country: CA (occurrence: CA)
  Receive Date: 20150729
  Receipt Date: 20160902
  Transmission Date: 20161109
  Serious: Yes (Hospitalization)
  Sender: FDA-Public Use
  Company Number: CA-ROCHE-1613905

PATIENT
  Age: 75 Year
  Sex: Female

DRUGS (17)
  1. VASOTEC (CANADA) [Concomitant]
     Route: 065
  2. PERJETA [Suspect]
     Active Substance: PERTUZUMAB
     Dosage: THERAPY DURATION: 1 DAY
     Route: 042
  3. CARBOPLATIN. [Suspect]
     Active Substance: CARBOPLATIN
     Indication: HER-2 POSITIVE BREAST CANCER
     Dosage: THERAPY DURATION: 1 DAY
     Route: 042
  4. NEUPOGEN [Concomitant]
     Active Substance: FILGRASTIM
     Route: 065
  5. CARBOPLATIN. [Suspect]
     Active Substance: CARBOPLATIN
     Route: 042
  6. ZOFRAN [Concomitant]
     Active Substance: ONDANSETRON HYDROCHLORIDE
  7. HERCEPTIN [Suspect]
     Active Substance: TRASTUZUMAB
     Indication: HER-2 POSITIVE BREAST CANCER
     Dosage: VIALS - POWDER FOR SOLUTION INTRAVENOUS
     Route: 042
  8. DECADRON [Concomitant]
     Active Substance: DEXAMETHASONE
  9. EMEND [Concomitant]
     Active Substance: APREPITANT
     Route: 065
  10. IMODIUM [Concomitant]
     Active Substance: LOPERAMIDE HYDROCHLORIDE
  11. STEMETIL [Concomitant]
     Active Substance: PROCHLORPERAZINE MALEATE
  12. DOCETAXEL. [Suspect]
     Active Substance: DOCETAXEL
     Dosage: THERAPY DURATION: 0 DAYS
     Route: 042
  13. BENADRYL [Concomitant]
     Active Substance: DIPHENHYDRAMINE HYDROCHLORIDE
  14. DOCETAXEL. [Suspect]
     Active Substance: DOCETAXEL
     Indication: HER-2 POSITIVE BREAST CANCER
     Route: 042
  15. TYLENOL [Concomitant]
     Active Substance: ACETAMINOPHEN
  16. HERCEPTIN [Suspect]
     Active Substance: TRASTUZUMAB
     Dosage: THERAPY DURATION: 1 DAY, VIALS
     Route: 042
  17. PERJETA [Suspect]
     Active Substance: PERTUZUMAB
     Indication: HER-2 POSITIVE BREAST CANCER
     Route: 042

REACTIONS (2)
  - Hypomagnesaemia [Recovered/Resolved]
  - Hypermagnesaemia [Recovered/Resolved]
